FAERS Safety Report 6307364-2 (Version None)
Quarter: 2009Q3

REPORT INFORMATION
  Report Type: 
  Country: None (occurrence: None)
  Receive Date: 20090807
  Receipt Date: 20090522
  Transmission Date: 20100115
  Serious: Yes (Hospitalization)
  Sender: FDA-Public Use
  Company Number: US-JNJFOC-20081203127

PATIENT
  Age: 13 Month
  Sex: Male
  Weight: 11.7935 kg

DRUGS (4)
  1. IBUPROFEN [Suspect]
     Indication: TEETHING
     Dosage: 50 MG , 1 IN 8 HOUR, ORAL
     Route: 048
     Dates: start: 20081205, end: 20081206
  2. ACETAMINOPHEN [Suspect]
     Indication: TEETHING
     Dosage: 160MG EVERY 4-6 HOURS
     Dates: start: 20080201
  3. IBUPROFEN [Suspect]
     Indication: TEETHING
     Dosage: 50 MG, 1 IN 8 HOUR, ORAL
     Route: 048
     Dates: start: 20081204, end: 20081205
  4. ZYRTEC [Suspect]
     Indication: ALLERGY PROPHYLAXIS
     Dosage: 2.5 ML, 2 IN 1 DAY

REACTIONS (1)
  - REACTION TO DRUG EXCIPIENTS [None]
